FAERS Safety Report 7440922-0 (Version None)
Quarter: 2011Q2

REPORT INFORMATION
  Report Type: 
  Country: None (occurrence: None)
  Receive Date: 20110427
  Receipt Date: 20110414
  Transmission Date: 20111010
  Serious: Yes (Other)
  Sender: FDA-Public Use
  Company Number: PHHY2009BR56399

PATIENT
  Sex: Female

DRUGS (3)
  1. TRILEPTAL [Concomitant]
  2. RIVOTRIL [Concomitant]
     Dosage: UNK
  3. EXELON [Suspect]
     Dosage: 9 MG, UNK
     Route: 062

REACTIONS (6)
  - HYPERSENSITIVITY [None]
  - SKIN LESION [None]
  - APPLICATION SITE ERYTHEMA [None]
  - INJURY [None]
  - FRONTOTEMPORAL DEMENTIA [None]
  - SKIN IRRITATION [None]
